FAERS Safety Report 5697068-1 (Version None)
Quarter: 2008Q2

REPORT INFORMATION
  Report Type: 
  Country: None (occurrence: None)
  Receive Date: 20080403
  Receipt Date: 20071130
  Transmission Date: 20081010
  Serious: Yes (Hospitalization)
  Sender: FDA-Public Use
  Company Number: 2007-0014518

PATIENT
  Age: 50 Year
  Sex: Male

DRUGS (4)
  1. TRUVADA [Suspect]
     Dates: start: 20070101, end: 20070801
  2. APTIVUS [Suspect]
     Dates: end: 20070801
  3. RITONAVIR (RITONAVIR) [Suspect]
     Dosage: 100 MG
     Dates: start: 20070101, end: 20070801
  4. RALTEGRAVIR [Concomitant]

REACTIONS (3)
  - BLOOD BILIRUBIN INCREASED [None]
  - HEPATIC STEATOSIS [None]
  - JAUNDICE [None]
